FAERS Safety Report 14882310 (Version 1)
Quarter: 2018Q2

REPORT INFORMATION
  Report Type: Spontaneous
  Country: CH (occurrence: CH)
  Receive Date: 20180511
  Receipt Date: 20180511
  Transmission Date: 20180711
  Serious: Yes (Hospitalization)
  Sender: FDA-Public Use
  Company Number: CH-SA-2018SA133852

PATIENT
  Age: 72 Year
  Sex: Female

DRUGS (13)
  1. SPIRIVA [Concomitant]
     Active Substance: TIOTROPIUM BROMIDE MONOHYDRATE
  2. METO ZEROK [Concomitant]
     Active Substance: METOPROLOL SUCCINATE
  3. TOREM [Concomitant]
     Active Substance: TORSEMIDE
  4. PREDNISON [Concomitant]
     Active Substance: PREDNISONE
  5. TRACLEER [Concomitant]
     Active Substance: BOSENTAN
  6. ZALDIAR [Concomitant]
     Active Substance: ACETAMINOPHEN\TRAMADOL HYDROCHLORIDE
  7. LYRICA [Concomitant]
     Active Substance: PREGABALIN
  8. ATORVASTATIN [Concomitant]
     Active Substance: ATORVASTATIN
  9. DEXILANT [Concomitant]
     Active Substance: DEXLANSOPRAZOLE
  10. PLAVIX [Suspect]
     Active Substance: CLOPIDOGREL BISULFATE
     Route: 048
     Dates: start: 20180322
  11. SINTROM [Suspect]
     Active Substance: ACENOCOUMAROL
     Route: 048
     Dates: end: 20180420
  12. ALDACTONE [Concomitant]
     Active Substance: SPIRONOLACTONE
  13. TEMESTA (LORAZEPAM) [Concomitant]
     Active Substance: LORAZEPAM

REACTIONS (2)
  - Asthenia [Recovered/Resolved]
  - Anaemia [Recovering/Resolving]

NARRATIVE: CASE EVENT DATE: 201804
